FAERS Safety Report 6111494-8 (Version None)
Quarter: 2009Q1

REPORT INFORMATION
  Report Type: 
  Country: None (occurrence: None)
  Receive Date: 20090310
  Receipt Date: 20090310
  Transmission Date: 20090719
  Serious: No
  Sender: FDA-Public Use
  Company Number: None

PATIENT
  Sex: Female
  Weight: 77.1115 kg

DRUGS (5)
  1. ABILIFY [Suspect]
     Indication: DISSOCIATIVE DISORDER
     Dosage: TAKE 1 30MG ONCE EVERY 3 DAYS PO
     Route: 048
     Dates: start: 20040426, end: 20090307
  2. ABILIFY [Suspect]
     Indication: PSYCHOTIC DISORDER
     Dosage: TAKE 1 30MG ONCE EVERY 3 DAYS PO
     Route: 048
     Dates: start: 20040426, end: 20090307
  3. ABILIFY [Suspect]
     Indication: SCHIZOAFFECTIVE DISORDER
     Dosage: TAKE 1 30MG ONCE EVERY 3 DAYS PO
     Route: 048
     Dates: start: 20040426, end: 20090307
  4. CYCLOBENZAPRINE [Concomitant]
  5. STERIOD/ CORTISONE SHOTS [Concomitant]

REACTIONS (7)
  - BLOOD GLUCOSE INCREASED [None]
  - DISCOMFORT [None]
  - HAEMATEMESIS [None]
  - HEAD INJURY [None]
  - LOSS OF CONSCIOUSNESS [None]
  - PAIN [None]
  - VOMITING PROJECTILE [None]
